FAERS Safety Report 22197332 (Version 3)
Quarter: 2023Q2

REPORT INFORMATION
  Report Type: Spontaneous
  Country: CN (occurrence: CN)
  Receive Date: 20230411
  Receipt Date: 20230510
  Transmission Date: 20230721
  Serious: Yes (Other)
  Sender: FDA-Public Use
  Company Number: CN-MLMSERVICE-20230328-4193594-1

PATIENT
  Age: 59 Year
  Sex: Female

DRUGS (5)
  1. METHYLPREDNISOLONE [Suspect]
     Active Substance: METHYLPREDNISOLONE
     Indication: Pemphigus
     Dosage: 12-16 MG METHYLPREDNISOLONE DAILY
  2. METHYLPREDNISOLONE [Suspect]
     Active Substance: METHYLPREDNISOLONE
     Dosage: 12-16 MG METHYLPREDNISOLONE DAILY
  3. METHYLPREDNISOLONE [Suspect]
     Active Substance: METHYLPREDNISOLONE
     Dosage: 8 MG METHYLPREDNISOLONE DAILY
  4. DUPILUMAB [Concomitant]
     Active Substance: DUPILUMAB
     Dosage: 600 MG SUBCUTANEOUSLY INITIALLY AND 300 MG SUBCUTANEOUSLY EVERY WEEK
     Route: 058
  5. DUPILUMAB [Concomitant]
     Active Substance: DUPILUMAB
     Dosage: 300 MG DUPILUMAB EVERY TWO WEEKS
     Route: 058

REACTIONS (1)
  - Osteoporosis [Unknown]
